FAERS Safety Report 22045929 (Version 2)
Quarter: 2023Q1

REPORT INFORMATION
  Report Type: Report from Study
  Country: CO (occurrence: CO)
  Receive Date: 20230228
  Receipt Date: 20230323
  Transmission Date: 20230417
  Serious: Yes (Hospitalization)
  Sender: FDA-Public Use
  Company Number: CO-002147023-NVSC2023CO037693

PATIENT
  Sex: Male

DRUGS (3)
  1. TASIGNA [Suspect]
     Active Substance: NILOTINIB
     Indication: Chronic myeloid leukaemia
     Dosage: UNK UNK, BID (TWICE A DAY/ EVER Y 12 HOURS)
     Route: 048
  2. TASIGNA [Suspect]
     Active Substance: NILOTINIB
     Dosage: 600 MG, QD
     Route: 048
  3. TASIGNA [Suspect]
     Active Substance: NILOTINIB
     Dosage: 150 MG, Q12H, (IN THE MORNING AND AT NIGHT)
     Route: 048

REACTIONS (5)
  - Asthenia [Unknown]
  - Central nervous system lesion [Unknown]
  - Decreased immune responsiveness [Unknown]
  - Speech disorder [Unknown]
  - Inappropriate schedule of product administration [Unknown]
